FAERS Safety Report 24330906 (Version 3)
Quarter: 2025Q3

REPORT INFORMATION
  Report Type: Report from Study
  Country: ZA (occurrence: ZA)
  Receive Date: 20240918
  Receipt Date: 20250803
  Transmission Date: 20251021
  Serious: Yes (Death, Other)
  Sender: ALEXION PHARMACEUTICALS
  Company Number: 2024A211396

PATIENT
  Age: 73 Year
  Sex: Male

DRUGS (8)
  1. BUDESONIDE\FORMOTEROL [Suspect]
     Active Substance: BUDESONIDE\FORMOTEROL
     Indication: Asthma
  2. Ibugesic forte [Concomitant]
  3. BISOPROLOL FUMARATE [Concomitant]
     Active Substance: BISOPROLOL FUMARATE
     Indication: Hypertension
  4. GLICLAZIDE [Concomitant]
     Active Substance: GLICLAZIDE
     Indication: Diabetes mellitus
  5. Spiractin [Concomitant]
     Indication: Hypertension
  6. ASPIRIN [Concomitant]
     Active Substance: ASPIRIN
     Indication: Coagulopathy
  7. EFAVIRENZ [Concomitant]
     Active Substance: EFAVIRENZ
     Indication: HIV antibody
  8. ABACAVIR SULFATE\LAMIVUDINE [Concomitant]
     Active Substance: ABACAVIR SULFATE\LAMIVUDINE
     Indication: HIV antibody

REACTIONS (1)
  - Death [Fatal]

NARRATIVE: CASE EVENT DATE: 20240904
